FAERS Safety Report 16272721 (Version 1)
Quarter: 2019Q2

REPORT INFORMATION
  Report Type: Spontaneous
  Country: US (occurrence: US)
  Receive Date: 20190503
  Receipt Date: 20190503
  Transmission Date: 20190711
  Serious: No
  Sender: FDA-Public Use
  Company Number: US-RADIUS HEALTH INC.-2019US000370

PATIENT
  Age: 58 Year
  Sex: Female

DRUGS (1)
  1. TYMLOS [Suspect]
     Active Substance: ABALOPARATIDE
     Indication: OSTEOPOROSIS POSTMENOPAUSAL
     Dosage: 80MCG
     Dates: start: 201711

REACTIONS (2)
  - Procollagen type I C-terminal propeptide increased [Unknown]
  - Serum procollagen type I N-terminal propeptide increased [Unknown]

NARRATIVE: CASE EVENT DATE: 201811
